FAERS Safety Report 21669348 (Version 1)
Quarter: 2022Q4

REPORT INFORMATION
  Report Type: Spontaneous
  Country: CA (occurrence: CA)
  Receive Date: 20221201
  Receipt Date: 20221201
  Transmission Date: 20230113
  Serious: Yes (Other)
  Sender: FDA-Public Use
  Company Number: CA-SAMSUNG BIOEPIS-SB-2022-30207

PATIENT
  Age: 22 Year
  Sex: Female

DRUGS (4)
  1. INFLIXIMAB [Suspect]
     Active Substance: INFLIXIMAB
     Indication: Crohn^s disease
     Route: 042
  2. CIPROFLOXACIN [Concomitant]
     Active Substance: CIPROFLOXACIN
     Indication: Product used for unknown indication
     Dosage: UNKNOWN
     Route: 065
  3. ESCITALOPRAM [Concomitant]
     Active Substance: ESCITALOPRAM OXALATE
     Indication: Product used for unknown indication
     Route: 065
  4. ETHINYL ESTRADIOL\NORGESTIMATE [Concomitant]
     Active Substance: ETHINYL ESTRADIOL\NORGESTIMATE
     Indication: Product used for unknown indication
     Dosage: UNKNOWN
     Route: 065

REACTIONS (17)
  - Anal erythema [Not Recovered/Not Resolved]
  - Anal fissure haemorrhage [Not Recovered/Not Resolved]
  - Anal fistula [Not Recovered/Not Resolved]
  - Anxiety [Not Recovered/Not Resolved]
  - Blood urine present [Not Recovered/Not Resolved]
  - Condition aggravated [Not Recovered/Not Resolved]
  - Constipation [Not Recovered/Not Resolved]
  - Defaecation urgency [Not Recovered/Not Resolved]
  - Disease recurrence [Not Recovered/Not Resolved]
  - Feeling hot [Not Recovered/Not Resolved]
  - Frequent bowel movements [Not Recovered/Not Resolved]
  - Pain [Not Recovered/Not Resolved]
  - Proctalgia [Not Recovered/Not Resolved]
  - Pruritus [Not Recovered/Not Resolved]
  - Rectal haemorrhage [Not Recovered/Not Resolved]
  - Somnolence [Not Recovered/Not Resolved]
  - Stress at work [Not Recovered/Not Resolved]
